FAERS Safety Report 16146547 (Version 1)
Quarter: 2019Q2

REPORT INFORMATION
  Report Type: Spontaneous
  Country: US (occurrence: US)
  Receive Date: 20190402
  Receipt Date: 20190402
  Transmission Date: 20190711
  Serious: Yes (Other)
  Sender: FDA-Public Use
  Company Number: US-BAYER-2019-059156

PATIENT
  Sex: Male

DRUGS (1)
  1. COPPERTONE SPORT SPF 15 [Suspect]
     Active Substance: AVOBENZONE\OCTISALATE\OCTOCRYLENE
     Dosage: UNK
     Route: 065

REACTIONS (1)
  - Chemical burn [Unknown]
